FAERS Safety Report 22379853 (Version 1)
Quarter: 2023Q2

REPORT INFORMATION
  Report Type: Spontaneous
  Country: US (occurrence: US)
  Receive Date: 20230529
  Receipt Date: 20230529
  Transmission Date: 20230721
  Serious: Yes (Other)
  Sender: FDA-Public Use
  Company Number: US-BRISTOL-MYERS SQUIBB COMPANY-2023-069940

PATIENT
  Age: 79 Year
  Sex: Female
  Weight: 66.7 kg

DRUGS (1)
  1. ABECMA [Suspect]
     Active Substance: IDECABTAGENE VICLEUCEL
     Indication: Plasma cell myeloma
     Route: 042
     Dates: start: 20221215

REACTIONS (5)
  - Fatigue [Not Recovered/Not Resolved]
  - Aphasia [Recovered/Resolved]
  - Cytokine release syndrome [Recovered/Resolved]
  - Hypoalbuminaemia [Recovered/Resolved]
  - Immune effector cell-associated neurotoxicity syndrome [Recovering/Resolving]

NARRATIVE: CASE EVENT DATE: 20221216
